FAERS Safety Report 19326986 (Version 1)
Quarter: 2021Q2

REPORT INFORMATION
  Report Type: Other
  Country: US (occurrence: US)
  Receive Date: 20210528
  Receipt Date: 20210528
  Transmission Date: 20210717
  Serious: Yes (Other)
  Sender: FDA-Public Use
  Company Number: US-ROCHE-2834230

PATIENT
  Age: 81 Year
  Sex: Male

DRUGS (2)
  1. WARFARIN [Concomitant]
     Active Substance: WARFARIN
  2. BEVACIZUMAB. [Suspect]
     Active Substance: BEVACIZUMAB
     Indication: MACULAR OEDEMA
     Route: 050

REACTIONS (4)
  - Retinal haemorrhage [Recovered/Resolved]
  - Vitreous haemorrhage [Recovered/Resolved]
  - Retinal tear [Recovered/Resolved]
  - Off label use [Unknown]
